FAERS Safety Report 10528496 (Version 1)
Quarter: 2014Q4

REPORT INFORMATION
  Report Type: Spontaneous
  Country: US (occurrence: None)
  Receive Date: 20141017
  Receipt Date: 20141017
  Transmission Date: 20150528
  Serious: Yes (Disabling)
  Sender: FDA-Public Use
  Company Number: None

PATIENT
  Age: 38 Year
  Sex: Female
  Weight: 74.84 kg

DRUGS (2)
  1. CYMBALTA [Suspect]
     Active Substance: DULOXETINE HYDROCHLORIDE
     Indication: DEPRESSION
     Dosage: TAKEN BY MOUTH
     Route: 048
  2. CYMBALTA [Suspect]
     Active Substance: DULOXETINE HYDROCHLORIDE
     Indication: ANXIETY
     Dosage: TAKEN BY MOUTH
     Route: 048

REACTIONS (18)
  - Pain [None]
  - Dyspnoea [None]
  - Headache [None]
  - Oedema peripheral [None]
  - Nausea [None]
  - Night sweats [None]
  - Panic attack [None]
  - Chest pain [None]
  - Palpitations [None]
  - Tremor [None]
  - Diarrhoea [None]
  - Optic neuritis [None]
  - Influenza like illness [None]
  - Anxiety [None]
  - Anger [None]
  - Chills [None]
  - Activities of daily living impaired [None]
  - Myalgia [None]

NARRATIVE: CASE EVENT DATE: 20140201
